FAERS Safety Report 21418180 (Version 1)
Quarter: 2022Q4

REPORT INFORMATION
  Report Type: Spontaneous
  Country: AR (occurrence: None)
  Receive Date: 20221006
  Receipt Date: 20221006
  Transmission Date: 20230113
  Serious: Yes (Other)
  Sender: FDA-Public Use
  Company Number: 2022A335933

PATIENT
  Age: 62 Year
  Sex: Male

DRUGS (3)
  1. DAPAGLIFLOZIN [Suspect]
     Active Substance: DAPAGLIFLOZIN
     Indication: Diabetes mellitus
     Route: 048
  2. ASPIRINET [Concomitant]
     Dosage: AT NIGHT
  3. INSULIN NOS [Concomitant]
     Active Substance: INSULIN NOS
     Dosage: ONCE A DAY

REACTIONS (6)
  - Vasculitis [Unknown]
  - Nodule [Unknown]
  - Contusion [Unknown]
  - Dizziness [Unknown]
  - Urticaria [Unknown]
  - Oedema peripheral [Unknown]
